FAERS Safety Report 6807145-7 (Version None)
Quarter: 2010Q2

REPORT INFORMATION
  Report Type: 
  Country: None (occurrence: None)
  Receive Date: 20100629
  Receipt Date: 20080812
  Transmission Date: 20101027
  Serious: No
  Sender: FDA-Public Use
  Company Number: US-PFIZER INC-2008059170

PATIENT
  Sex: Male
  Weight: 80.29 kg

DRUGS (7)
  1. TIKOSYN [Suspect]
     Indication: ATRIAL FIBRILLATION
     Route: 048
     Dates: start: 20080602
  2. ROSUVASTATIN [Concomitant]
  3. WARFARIN [Concomitant]
  4. TAMSULOSIN HCL [Concomitant]
  5. MULTI-VITAMINS [Concomitant]
  6. OMEGA-3 TRIGLYCERIDES [Concomitant]
  7. ACETYLSALICYLIC ACID [Concomitant]

REACTIONS (2)
  - HYPERHIDROSIS [None]
  - NIGHTMARE [None]
